FAERS Safety Report 6457427-6 (Version None)
Quarter: 2009Q4

REPORT INFORMATION
  Report Type: 
  Country: None (occurrence: None)
  Receive Date: 20091120
  Receipt Date: 20091110
  Transmission Date: 20100525
  Serious: Yes (Death, Hospitalization, Other)
  Sender: FDA-Public Use
  Company Number: 2007-03393

PATIENT
  Age: 49 Year
  Sex: Male
  Weight: 63 kg

DRUGS (9)
  1. VELCADE [Suspect]
     Indication: MULTIPLE MYELOMA
     Dosage: 2 MG, INTRAVENOUS
     Route: 042
     Dates: start: 20070921, end: 20071001
  2. DEXAMETHASONE TAB [Concomitant]
  3. ZOMETA [Concomitant]
  4. IMMUNE GLOBULIN INTRAVENOUS (HUMAN) [Concomitant]
  5. ACETAMINOPHEN [Concomitant]
  6. DIFLUCAN [Concomitant]
  7. RED BLOOD CELLS [Concomitant]
  8. PLASMA [Concomitant]
  9. BENAMBAX (PENTAMIDINE) [Concomitant]

REACTIONS (12)
  - ALANINE AMINOTRANSFERASE INCREASED [None]
  - ASPARTATE AMINOTRANSFERASE INCREASED [None]
  - BLOOD ALKALINE PHOSPHATASE INCREASED [None]
  - BLOOD IMMUNOGLOBULIN A INCREASED [None]
  - BLOOD LACTATE DEHYDROGENASE INCREASED [None]
  - HERPES ZOSTER [None]
  - NEUROPATHY PERIPHERAL [None]
  - PNEUMOCYSTIS JIROVECI PNEUMONIA [None]
  - PNEUMONIA KLEBSIELLA [None]
  - SEPTIC SHOCK [None]
  - SPUTUM CULTURE POSITIVE [None]
  - TACHYCARDIA [None]
